FAERS Safety Report 13778452 (Version 1)
Quarter: 2017Q3

REPORT INFORMATION
  Report Type: Spontaneous
  Country: DE (occurrence: DE)
  Receive Date: 20170721
  Receipt Date: 20170721
  Transmission Date: 20171127
  Serious: Yes (Hospitalization)
  Sender: FDA-Public Use
  Company Number: DE-AXELLIA-001143

PATIENT
  Age: 74 Year
  Sex: Male

DRUGS (3)
  1. COLISTIN [Suspect]
     Active Substance: COLISTIN
     Indication: KLEBSIELLA INFECTION
     Dosage: THEN 4.5 MIU Q12H+INTRAVENTRICULAR 0.25 MIU Q12H
     Route: 040
  2. MEROPENEM. [Concomitant]
     Active Substance: MEROPENEM
     Indication: PNEUMONIA KLEBSIELLA
     Dosage: 3 X 2 G AS PROLONGED INFUSION OF 4 H EVERY 8 H
  3. FOSFOMYCIN [Concomitant]
     Active Substance: FOSFOMYCIN
     Indication: PNEUMONIA KLEBSIELLA
     Route: 042

REACTIONS (1)
  - Acute kidney injury [Recovered/Resolved]
